FAERS Safety Report 9320546 (Version 2)
Quarter: 2013Q2

REPORT INFORMATION
  Report Type: Report from Study
  Country: CH (occurrence: CH)
  Receive Date: 20130531
  Receipt Date: 20130613
  Transmission Date: 20140414
  Serious: Yes (Hospitalization)
  Sender: FDA-Public Use
  Company Number: PHHO2013CH006852

PATIENT
  Age: 55 Year
  Sex: Male
  Weight: 88 kg

DRUGS (5)
  1. BAF312 [Suspect]
     Indication: RELAPSING-REMITTING MULTIPLE SCLEROSIS
     Dosage: 2 MG, QD
     Route: 048
     Dates: start: 20121226, end: 20130521
  2. SIRDALUD [Suspect]
     Indication: MUSCLE SPASTICITY
     Dosage: 4 MG, UNK
     Route: 048
     Dates: start: 20110921, end: 20130520
  3. SIMVASTATINE [Suspect]
     Indication: HYPERCHOLESTEROLAEMIA
     Dosage: 20 MG, UNK
     Dates: end: 20130521
  4. SEVIKAR HCT [Suspect]
     Indication: HYPERTENSION
     Dosage: 12.5 MG, UNK
     Route: 048
     Dates: start: 20130228, end: 20130521
  5. CITALOPRAM [Concomitant]
     Indication: DEPRESSION
     Dosage: 20 MG, UNK
     Route: 048

REACTIONS (1)
  - Pancreatitis acute [Recovered/Resolved]
